FAERS Safety Report 5387090-7 (Version None)
Quarter: 2007Q3

REPORT INFORMATION
  Report Type: 
  Country: None (occurrence: None)
  Receive Date: 20070711
  Receipt Date: 20070629
  Transmission Date: 20080115
  Serious: Yes (Hospitalization)
  Sender: FDA-Public Use
  Company Number: CIP07001252

PATIENT
  Age: 86 Year
  Sex: Male

DRUGS (12)
  1. ACTONEL [Suspect]
     Dosage: 35 MG WEEKLY, ORAL
     Route: 048
     Dates: start: 20050101, end: 20070501
  2. DIOVAN                                 /01319601/ (VALSARTAN) [Concomitant]
  3. BETAPACE [Concomitant]
  4. LUPRON [Concomitant]
  5. CADUET            (ATORVASTATIN CALCIUM, AMLODIPINE BESILATE) [Concomitant]
  6. POSTURE D            /00207901/ (ERGOCALCIFEROL, CALCIUM PHOSPHATE) [Concomitant]
  7. FOLIC ACID [Concomitant]
  8. LUTEIN                 (XANTOFYL) [Concomitant]
  9. COUMADIN [Concomitant]
  10. LASIX [Concomitant]
  11. POTASSIUM                 (POTASSIUM) [Concomitant]
  12. VITAMIN D                      /00107901/ (ERGOCALCIFEROL) [Concomitant]

REACTIONS (4)
  - FALL [None]
  - HYPOTENSION [None]
  - LOSS OF CONSCIOUSNESS [None]
  - PRESYNCOPE [None]
